FAERS Safety Report 8932600 (Version 3)
Quarter: 2013Q1

REPORT INFORMATION
  Report Type: Report from Study
  Country: CA (occurrence: CA)
  Receive Date: 20121128
  Receipt Date: 20130109
  Transmission Date: 20140127
  Serious: Yes (Hospitalization, Other)
  Sender: FDA-Public Use
  Company Number: CA-ABBOTT-12P-028-1012195-00

PATIENT
  Age: 76 None
  Sex: Male

DRUGS (3)
  1. HUMIRA [Suspect]
     Route: 058
     Dates: start: 20121119, end: 20121119
  2. HUMIRA [Suspect]
     Route: 058
  3. BISOPROLOL [Concomitant]
     Indication: BLOOD PRESSURE

REACTIONS (6)
  - Hospitalisation [Unknown]
  - Abdominal pain [Not Recovered/Not Resolved]
  - Pain [Unknown]
  - Diarrhoea [Recovering/Resolving]
  - Dehydration [Unknown]
  - Hypotension [Not Recovered/Not Resolved]
